FAERS Safety Report 16458305 (Version 1)
Quarter: 2019Q2

REPORT INFORMATION
  Report Type: Spontaneous
  Country: NL (occurrence: NL)
  Receive Date: 20190620
  Receipt Date: 20190620
  Transmission Date: 20190711
  Serious: Yes (Hospitalization)
  Sender: FDA-Public Use
  Company Number: NL-MYLANLABS-2019M1056977

PATIENT
  Age: 72 Year
  Sex: Male
  Weight: 73 kg

DRUGS (8)
  1. ALENDRONINEZUUR [Suspect]
     Active Substance: ALENDRONIC ACID
     Indication: FEMUR FRACTURE
     Dosage: 70 MILLIGRAM, QW (1X PER WEEK 1 TABLET)
     Route: 048
     Dates: start: 20160705, end: 20181206
  2. NEBIVOLOL. [Concomitant]
     Active Substance: NEBIVOLOL
     Dosage: 5 MILLIGRAM, QD (5 MG, 1X DD TIJDENS DE LUNCH)
     Route: 048
  3. HYDROCHLOORTHIAZIDE [Concomitant]
     Active Substance: HYDROCHLOROTHIAZIDE
     Dosage: 12 MILLIGRAM, QD (12,5 MG, 1X DD TIJDENS DE LUNCH)
     Route: 048
  4. HYDROXOCOBALAMINE [Concomitant]
     Active Substance: HYDROXOCOBALAMIN
     Dosage: 1000 MICROGRAM, Q3MONTHS (1.000 MCG, ELKE 3 MND)
     Route: 030
  5. PANTOPRAZOL                        /01263201/ [Concomitant]
     Active Substance: PANTOPRAZOLE
     Dosage: 40 MILLIGRAM, QD (40 MG, 1X DD TIJDENS DE LUNCH)
     Route: 048
  6. ASCAL                              /00800002/ [Concomitant]
     Active Substance: CARBASPIRIN
     Dosage: 100 MILLIGRAM, QD (100 MG, 1X DD TIJDENS DE LUNCH)
     Route: 048
  7. CALCIUM CARBONATE W/COLECALCIFEROL [Concomitant]
     Active Substance: CALCIUM CARBONATE\CHOLECALCIFEROL
     Dosage: 1 DOSAGE FORM, QD (1 TABLET, VOOR DE NACHT)
     Route: 048
  8. DIAZEPAM. [Concomitant]
     Active Substance: DIAZEPAM
     Dosage: 1 MILLIGRAM, QD (1 MG, VOOR DE NACHT)
     Route: 048

REACTIONS (2)
  - Femur fracture [Recovering/Resolving]
  - Condition aggravated [Recovering/Resolving]

NARRATIVE: CASE EVENT DATE: 20181206
